FAERS Safety Report 25276381 (Version 2)
Quarter: 2025Q3

REPORT INFORMATION
  Report Type: Spontaneous
  Country: JP (occurrence: JP)
  Receive Date: 20250507
  Receipt Date: 20250701
  Transmission Date: 20251021
  Serious: Yes (Other)
  Sender: SANOFI AVENTIS
  Company Number: JP-SAKK-2025SA123321AA

PATIENT
  Age: 5 Decade
  Sex: Male

DRUGS (4)
  1. CABLIVI [Suspect]
     Active Substance: CAPLACIZUMAB-YHDP
     Indication: Product used for unknown indication
     Route: 065
  2. CABLIVI [Suspect]
     Active Substance: CAPLACIZUMAB-YHDP
     Indication: Product used for unknown indication
     Route: 065
  3. CABLIVI [Suspect]
     Active Substance: CAPLACIZUMAB-YHDP
     Indication: Product used for unknown indication
     Route: 065
  4. CABLIVI [Suspect]
     Active Substance: CAPLACIZUMAB-YHDP
     Indication: Product used for unknown indication
     Route: 065

REACTIONS (6)
  - Steroid diabetes [Recovering/Resolving]
  - Hypokalaemia [Recovering/Resolving]
  - Purpura [Recovered/Resolved]
  - Blood lactate dehydrogenase increased [Recovering/Resolving]
  - Hypophosphataemia [Recovering/Resolving]
  - Acne [Recovering/Resolving]

NARRATIVE: CASE EVENT DATE: 20250211
